FAERS Safety Report 6062887-9 (Version None)
Quarter: 2009Q1

REPORT INFORMATION
  Report Type: 
  Country: None (occurrence: None)
  Receive Date: 20090202
  Receipt Date: 20090202
  Transmission Date: 20090719
  Serious: Yes (Life-Threatening, Hospitalization)
  Sender: FDA-Public Use
  Company Number: None

PATIENT
  Sex: Female
  Weight: 163.2949 kg

DRUGS (3)
  1. ABILIFY [Suspect]
     Indication: BIPOLAR DISORDER
     Dosage: 5MG 2 XS A DAY PO
     Route: 048
     Dates: start: 20080202, end: 20080628
  2. ABILIFY [Suspect]
     Indication: DEPRESSION
     Dosage: 5MG 2 XS A DAY PO
     Route: 048
     Dates: start: 20080202, end: 20080628
  3. HADOL [Concomitant]

REACTIONS (5)
  - ABNORMAL BEHAVIOUR [None]
  - IMPAIRED SELF-CARE [None]
  - IMPRISONMENT [None]
  - PARANOIA [None]
  - THINKING ABNORMAL [None]
